FAERS Safety Report 21303339 (Version 2)
Quarter: 2022Q3

REPORT INFORMATION
  Report Type: Spontaneous
  Country: GB (occurrence: GB)
  Receive Date: 20220907
  Receipt Date: 20220917
  Transmission Date: 20221026
  Serious: Yes (Disabling)
  Sender: FDA-Public Use
  Company Number: GB-Zentiva-2022-ZT-007526

PATIENT
  Sex: Female

DRUGS (1)
  1. LEVOTHYROXINE [Suspect]
     Active Substance: LEVOTHYROXINE
     Indication: Hypothyroidism
     Dosage: 120 MICROGRAM DAILY; LEVOTHYROXINE 100 MICROGRAMS/5ML,  6 ML PER DAY
     Route: 048
     Dates: start: 202205, end: 202208

REACTIONS (3)
  - Muscle spasms [Recovered/Resolved]
  - Muscle rigidity [Recovered/Resolved]
  - Diarrhoea [Recovered/Resolved]
